FAERS Safety Report 6414192-6 (Version None)
Quarter: 2009Q4

REPORT INFORMATION
  Report Type: 
  Country: None (occurrence: None)
  Receive Date: 20091026
  Receipt Date: 20091016
  Transmission Date: 20100525
  Serious: Yes (Other)
  Sender: FDA-Public Use
  Company Number: US-PFIZER INC-2009263036

PATIENT
  Sex: Female

DRUGS (2)
  1. NORVASC [Suspect]
  2. VERAPAMIL [Concomitant]

REACTIONS (2)
  - EROSIVE OESOPHAGITIS [None]
  - PAIN IN EXTREMITY [None]
